FAERS Safety Report 15742097 (Version 1)
Quarter: 2018Q4

REPORT INFORMATION
  Report Type: Spontaneous
  Country: US (occurrence: US)
  Receive Date: 20181219
  Receipt Date: 20181219
  Transmission Date: 20190205
  Serious: Yes (Life-Threatening, Hospitalization)
  Sender: FDA-Public Use
  Company Number: None

PATIENT
  Age: 50 Year
  Sex: Female
  Weight: 144 kg

DRUGS (4)
  1. DEXMEDETOMIDINE. [Concomitant]
     Active Substance: DEXMEDETOMIDINE
     Dates: start: 20181004, end: 20181004
  2. SUGAMMADEX [Suspect]
     Active Substance: SUGAMMADEX
     Indication: NEUROMUSCULAR BLOCKADE REVERSAL
     Dosage: ?          OTHER FREQUENCY:ONCE;?
     Route: 040
     Dates: start: 20181004, end: 20181004
  3. ROCURONIUM [Concomitant]
     Active Substance: ROCURONIUM BROMIDE
     Dates: start: 20181004, end: 20181004
  4. SEVOFLURANE. [Concomitant]
     Active Substance: SEVOFLURANE
     Dates: start: 20181004

REACTIONS (3)
  - Procedural complication [None]
  - Cardiac arrest [None]
  - Bradycardia [None]

NARRATIVE: CASE EVENT DATE: 20181004
